FAERS Safety Report 25975818 (Version 2)
Quarter: 2025Q4

REPORT INFORMATION
  Report Type: Spontaneous
  Country: US (occurrence: US)
  Receive Date: 20251029
  Receipt Date: 20251114
  Transmission Date: 20260117
  Serious: No
  Sender: ALEMBIC
  Company Number: US-ALEMBIC PHARMACUETICALS LIMITED-2025SCAL001422

PATIENT

DRUGS (3)
  1. DAPSONE [Suspect]
     Active Substance: DAPSONE
     Indication: Acne
     Dosage: TO APPLY 1 TO 1 AND HALF PUMPS TO HER FACE AND NECK ONCE OR TWICE DAILY
     Route: 061
     Dates: start: 20250902, end: 20250923
  2. ALOE [Concomitant]
     Active Substance: ALOE
     Indication: Acne
     Dosage: UNK
     Route: 065
  3. VITAMIN C [Concomitant]
     Active Substance: ASCORBIC ACID
     Indication: Acne
     Dosage: UNK
     Route: 065

REACTIONS (5)
  - Erythema [Recovered/Resolved]
  - Pain [Recovered/Resolved]
  - Product physical issue [Unknown]
  - Product substitution issue [Unknown]
  - Product physical consistency issue [Unknown]

NARRATIVE: CASE EVENT DATE: 20250902
